FAERS Safety Report 8799449 (Version 1)
Quarter: 2012Q4

REPORT INFORMATION
  Report Type: Spontaneous
  Country: CA (occurrence: None)
  Receive Date: 20120914
  Receipt Date: 20120914
  Transmission Date: 20130627
  Serious: Yes (Other)
  Sender: FDA-Public Use
  Company Number: 2012AP002810

PATIENT
  Age: 76 Year
  Sex: Male

DRUGS (5)
  1. GABAPENTIN [Suspect]
     Dates: start: 2004
  2. PREDNISONE (PREDNISONE) [Suspect]
     Dates: start: 2009, end: 201112
  3. CELECOXIB (CELECOXIB) [Concomitant]
  4. TENORMIN (ATENOLOL) [Concomitant]
  5. NITRAZEPAM (NITRAZEPAM) [Concomitant]

REACTIONS (2)
  - Hypotonia [None]
  - Musculoskeletal stiffness [None]
